FAERS Safety Report 19433394 (Version 5)
Quarter: 2022Q1

REPORT INFORMATION
  Report Type: Spontaneous
  Country: US (occurrence: US)
  Receive Date: 20210617
  Receipt Date: 20220218
  Transmission Date: 20220423
  Serious: Yes (Other)
  Sender: FDA-Public Use
  Company Number: US-PFIZER INC-2021670892

PATIENT
  Age: 71 Year
  Sex: Female
  Weight: 58.97 kg

DRUGS (1)
  1. TOVIAZ [Suspect]
     Active Substance: FESOTERODINE FUMARATE
     Indication: Bladder spasm
     Dosage: 8 MG, 1X/DAY
     Route: 048

REACTIONS (11)
  - Multiple sclerosis relapse [Unknown]
  - Mental impairment [Unknown]
  - Foot fracture [Unknown]
  - Weight decreased [Unknown]
  - Urinary incontinence [Unknown]
  - Therapeutic product effect incomplete [Unknown]
  - Fall [Unknown]
  - Nasal injury [Unknown]
  - Contusion [Unknown]
  - Arthralgia [Unknown]
  - Off label use [Unknown]

NARRATIVE: CASE EVENT DATE: 20211201
